FAERS Safety Report 4481119-6 (Version None)
Quarter: 2004Q4

REPORT INFORMATION
  Report Type: 
  Country: None (occurrence: None)
  Receive Date: 20041021
  Receipt Date: 20041012
  Transmission Date: 20050328
  Serious: Yes (Hospitalization)
  Sender: FDA-Public Use
  Company Number: FR-BRISTOL-MYERS SQUIBB COMPANY-12730453

PATIENT
  Age: 56 Year
  Sex: Male
  Weight: 76 kg

DRUGS (3)
  1. PARAPLATIN [Suspect]
     Dosage: THERAPY DATES: 08-JUL TO 24-AUG-2004
     Route: 042
     Dates: start: 20040824, end: 20040824
  2. GEMZAR [Suspect]
     Dosage: THERAPY DATES: 08-JUL TO 24-AUG-2004
     Route: 042
     Dates: start: 20040824, end: 20040824
  3. CISPLATYL [Concomitant]
     Dates: start: 20040708, end: 20040708

REACTIONS (2)
  - PERIPHERAL ISCHAEMIA [None]
  - RAYNAUD'S PHENOMENON [None]
